FAERS Safety Report 9966875 (Version 5)
Quarter: 2017Q1

REPORT INFORMATION
  Report Type: Report from Study
  Country: None (occurrence: US)
  Receive Date: 20140305
  Receipt Date: 20170116
  Transmission Date: 20170429
  Serious: Yes (Disabling, Other)
  Sender: FDA-Public Use
  Company Number: US-ABBVIE-14P-163-1206198-00

PATIENT
  Age: 61 Year
  Sex: Female

DRUGS (33)
  1. LAMICTAL [Concomitant]
     Active Substance: LAMOTRIGINE
     Indication: PRODUCT USED FOR UNKNOWN INDICATION
  2. ROBAXIN [Concomitant]
     Active Substance: METHOCARBAMOL
     Indication: PRODUCT USED FOR UNKNOWN INDICATION
     Dosage: PRN
  3. SINGULAIR [Concomitant]
     Active Substance: MONTELUKAST SODIUM
     Indication: ASTHMA
     Dosage: AT BEDTIME
  4. LIDOCAINE. [Concomitant]
     Active Substance: LIDOCAINE
     Indication: PRODUCT USED FOR UNKNOWN INDICATION
     Dosage: DAILY OR WEEKLY AS NEEDED
  5. PRILOSEC [Concomitant]
     Active Substance: OMEPRAZOLE MAGNESIUM
     Indication: GASTROOESOPHAGEAL REFLUX DISEASE
  6. METHOTREXATE. [Concomitant]
     Active Substance: METHOTREXATE
     Indication: RHEUMATOID ARTHRITIS
     Dosage: SUNDAY AM
  7. ADVAIR HFA [Concomitant]
     Active Substance: FLUTICASONE PROPIONATE\SALMETEROL XINAFOATE
     Indication: ASTHMA
     Dosage: 100/50 ONE PUFF DAILY
  8. LEVOTHYROXINE. [Concomitant]
     Active Substance: LEVOTHYROXINE
     Indication: PRODUCT USED FOR UNKNOWN INDICATION
  9. HUMIRA [Suspect]
     Active Substance: ADALIMUMAB
     Route: 058
     Dates: start: 201308, end: 201402
  10. ALBUTEROL. [Concomitant]
     Active Substance: ALBUTEROL
     Indication: ASTHMA
  11. ADVAIR HFA [Concomitant]
     Active Substance: FLUTICASONE PROPIONATE\SALMETEROL XINAFOATE
     Dosage: 200/100 1 PUFF DAILY
  12. DULCOLAX SUPPOSITORIES [Concomitant]
     Indication: PRODUCT USED FOR UNKNOWN INDICATION
  13. HEPARIN BLADDER WASH WITH NORMAL SALINE [Concomitant]
     Indication: PRODUCT USED FOR UNKNOWN INDICATION
     Dosage: DAILY OR WEEKLY AS NEEDED
  14. HUMIRA [Suspect]
     Active Substance: ADALIMUMAB
     Route: 065
     Dates: start: 201403, end: 201403
  15. HUMIRA [Suspect]
     Active Substance: ADALIMUMAB
     Route: 065
     Dates: end: 201610
  16. HUMIRA [Suspect]
     Active Substance: ADALIMUMAB
     Route: 065
     Dates: start: 201612
  17. PANTOPRAZOLE [Concomitant]
     Active Substance: PANTOPRAZOLE SODIUM
     Indication: PRODUCT USED FOR UNKNOWN INDICATION
     Dosage: AT BEDTIME
  18. COLACE [Concomitant]
     Active Substance: DOCUSATE SODIUM
     Indication: IRRITABLE BOWEL SYNDROME
  19. IMITREX [Concomitant]
     Active Substance: SUMATRIPTAN SUCCINATE
     Indication: MIGRAINE
     Dosage: BID UP TO 2 DAYS/WEEK
     Route: 050
  20. PROPANOLOL [Concomitant]
     Active Substance: PROPRANOLOL HYDROCHLORIDE
     Indication: HYPERTENSION
  21. FOLIC ACID. [Concomitant]
     Active Substance: FOLIC ACID
     Indication: PRODUCT USED FOR UNKNOWN INDICATION
  22. GABAPENTIN. [Concomitant]
     Active Substance: GABAPENTIN
     Indication: FIBROMYALGIA
     Dosage: 3-4 TIMES DAILY
  23. IBUPROFEN. [Concomitant]
     Active Substance: IBUPROFEN
     Indication: ARTHRALGIA
     Dosage: PRN
  24. LEVOTHYROXINE. [Concomitant]
     Active Substance: LEVOTHYROXINE
  25. MULTIVITAMIN [Concomitant]
     Active Substance: VITAMINS
     Indication: PRODUCT USED FOR UNKNOWN INDICATION
  26. SENNA [Concomitant]
     Active Substance: SENNA LEAF\SENNOSIDES\SENNOSIDES A AND B
     Indication: IRRITABLE BOWEL SYNDROME
  27. HUMIRA [Suspect]
     Active Substance: ADALIMUMAB
     Indication: RHEUMATOID ARTHRITIS
     Route: 058
     Dates: start: 2007, end: 2012
  28. MAXALT [Concomitant]
     Active Substance: RIZATRIPTAN BENZOATE
     Indication: MIGRAINE
     Dosage: UP TO BID TWICE A WEEK IF NEEDED
  29. ALBUTEROL INHALER [Concomitant]
     Active Substance: ALBUTEROL
     Indication: ASTHMA
     Route: 055
  30. PROMETHAZINE [Concomitant]
     Active Substance: PROMETHAZINE\PROMETHAZINE HYDROCHLORIDE
     Indication: NAUSEA
  31. PROMETHAZINE [Concomitant]
     Active Substance: PROMETHAZINE\PROMETHAZINE HYDROCHLORIDE
     Indication: MIGRAINE
  32. AMITIZA [Concomitant]
     Active Substance: LUBIPROSTONE
     Indication: PRODUCT USED FOR UNKNOWN INDICATION
  33. CALCIUM WITH VITAMIN D [Concomitant]
     Active Substance: CALCIUM\VITAMIN D
     Indication: PRODUCT USED FOR UNKNOWN INDICATION

REACTIONS (34)
  - Chronic kidney disease [Unknown]
  - Rash papular [Unknown]
  - Laceration [Unknown]
  - Cellulitis [Unknown]
  - Dyspnoea [Not Recovered/Not Resolved]
  - Joint swelling [Unknown]
  - Gait disturbance [Unknown]
  - Activities of daily living impaired [Unknown]
  - Rotator cuff syndrome [Unknown]
  - Pelvic fracture [Unknown]
  - Thyroid mass [Recovered/Resolved]
  - Blepharoplasty [Unknown]
  - Fall [Unknown]
  - Localised infection [Unknown]
  - Neuralgia [Unknown]
  - Upper limb fracture [Unknown]
  - Skin haemorrhage [Unknown]
  - Thyroid function test abnormal [Unknown]
  - Nephrolithiasis [Unknown]
  - Dry skin [Unknown]
  - Sensory disturbance [Unknown]
  - Renal impairment [Unknown]
  - Transplant failure [Unknown]
  - Peripheral swelling [Unknown]
  - Pain in extremity [Unknown]
  - Poor quality sleep [Not Recovered/Not Resolved]
  - Arthralgia [Unknown]
  - Knee arthroplasty [Unknown]
  - Cystitis [Unknown]
  - Erythema [Unknown]
  - Renal pain [Not Recovered/Not Resolved]
  - Injection site mass [Unknown]
  - Drug ineffective [Unknown]
  - Joint stiffness [Unknown]

NARRATIVE: CASE EVENT DATE: 2009
